FAERS Safety Report 14652874 (Version 5)
Quarter: 2018Q2

REPORT INFORMATION
  Report Type: Spontaneous
  Country: US (occurrence: US)
  Receive Date: 20180319
  Receipt Date: 20180511
  Transmission Date: 20180711
  Serious: No
  Sender: FDA-Public Use
  Company Number: US-009507513-1803USA000467

PATIENT
  Sex: Female

DRUGS (1)
  1. IMPLANON [Suspect]
     Active Substance: ETONOGESTREL
     Dosage: 1 IMPLANT (68 MG), UNK
     Route: 059
     Dates: start: 2017

REACTIONS (4)
  - Amenorrhoea [Unknown]
  - Complication associated with device [Not Recovered/Not Resolved]
  - Menstruation irregular [Unknown]
  - Device difficult to use [Not Recovered/Not Resolved]
